FAERS Safety Report 10606620 (Version 1)
Quarter: 2014Q4

REPORT INFORMATION
  Report Type: Spontaneous
  Country: US (occurrence: None)
  Receive Date: 20141124
  Receipt Date: 20141124
  Transmission Date: 20150529
  Serious: No
  Sender: FDA-Public Use
  Company Number: None

PATIENT
  Age: 51 Year
  Sex: Female
  Weight: 99.79 kg

DRUGS (1)
  1. MONTELUKAST [Suspect]
     Active Substance: MONTELUKAST SODIUM
     Indication: PERENNIAL ALLERGY
     Route: 048
     Dates: start: 20140905, end: 20141031

REACTIONS (2)
  - Asthma [None]
  - Hypersensitivity [None]

NARRATIVE: CASE EVENT DATE: 20140915
